FAERS Safety Report 7206403-4 (Version None)
Quarter: 2010Q4

REPORT INFORMATION
  Report Type: 
  Country: None (occurrence: None)
  Receive Date: 20101217
  Receipt Date: 20101213
  Transmission Date: 20110411
  Serious: Yes (Hospitalization)
  Sender: FDA-Public Use
  Company Number: 2010CP000323

PATIENT
  Age: 57 Year
  Sex: Male

DRUGS (13)
  1. PERFALGAN (PARACETAMOL) [Suspect]
     Indication: BACK PAIN
     Dosage: 1 GRAM; 1 DAY; IV
     Route: 042
     Dates: start: 20101022
  2. ACETAMINOPHEN [Suspect]
     Indication: BACK PAIN
     Dosage: 3 GRAM; 1 DAY; PO
     Route: 048
     Dates: start: 20101023, end: 20101027
  3. KETOPROFEN [Suspect]
     Indication: BACK PAIN
     Dosage: 100 MILLIGRAM; 1 DAY; IV
     Route: 042
     Dates: start: 20101022
  4. TOPALGIC (TRAMADOL HCL) (NO PREF. NAME) [Suspect]
     Indication: BACK PAIN
     Dosage: 100 MILLIGRAM; 1 DAY; IV
     Route: 042
     Dates: start: 20101022
  5. PREZISTA [Suspect]
     Indication: HIV INFECTION
     Dosage: 800 MILLIGRAM; 1 DAY; ORAL
     Route: 048
     Dates: start: 20100819
  6. NORVIR [Suspect]
     Indication: HIV INFECTION
     Dosage: 100 MILLIGRAM; 1 DAY; PO
     Route: 048
     Dates: start: 20100819
  7. TRUVADA [Suspect]
     Indication: HIV INFECTION
     Dosage: 1 DOSAGE FORM; PO
     Route: 048
     Dates: start: 20100819
  8. BACTRIM DS [Concomitant]
  9. MORPHINE SULFATE [Concomitant]
  10. XATRAL [Concomitant]
  11. IMOVINE (ZOPICLONE) [Concomitant]
  12. SPIRIVA [Concomitant]
  13. BECLOMETASONE DIPROPIONATE-FORMOTEROL FUMARATE [Concomitant]

REACTIONS (3)
  - CYTOLYTIC HEPATITIS [None]
  - HEPATITIS CHOLESTATIC [None]
  - HEPATOTOXICITY [None]
